FAERS Safety Report 13354084 (Version 1)
Quarter: 2017Q1

REPORT INFORMATION
  Report Type: Spontaneous
  Country: US (occurrence: US)
  Receive Date: 20170320
  Receipt Date: 20170320
  Transmission Date: 20170429
  Serious: Yes (Other)
  Sender: FDA-Public Use
  Company Number: None

PATIENT
  Age: 62 Year
  Sex: Female
  Weight: 67.5 kg

DRUGS (3)
  1. RITEAID GENERIC MUCINEX EXTRA ST [Suspect]
     Active Substance: GUAIFENESIN
     Indication: VIRAL INFECTION
     Route: 048
     Dates: start: 20170314, end: 20170315
  2. CALCIUM CARBONATE CHEWABLES [Concomitant]
  3. METROCREAM [Concomitant]
     Active Substance: METRONIDAZOLE

REACTIONS (6)
  - Dizziness [None]
  - Head injury [None]
  - Eye contusion [None]
  - Back injury [None]
  - Syncope [None]
  - Joint injury [None]

NARRATIVE: CASE EVENT DATE: 20170315
